FAERS Safety Report 7508160-0 (Version None)
Quarter: 2011Q2

REPORT INFORMATION
  Report Type: 
  Country: None (occurrence: None)
  Receive Date: 20110527
  Receipt Date: 20110525
  Transmission Date: 20111010
  Serious: Yes (Other)
  Sender: FDA-Public Use
  Company Number: US-BAYER-2011-045424

PATIENT
  Sex: Female

DRUGS (3)
  1. DROSPIRENONE AND ETHINYL ESTRADIOL [Suspect]
     Dosage: UNK
     Dates: start: 20081201
  2. YASMIN [Suspect]
     Dosage: UNK
     Dates: start: 20081201
  3. YAZ [Suspect]
     Dosage: UNK
     Dates: start: 20081201

REACTIONS (10)
  - FEAR [None]
  - PULMONARY EMBOLISM [None]
  - GALLBLADDER DISORDER [None]
  - INJURY [None]
  - ANXIETY [None]
  - DEEP VEIN THROMBOSIS [None]
  - MYOCARDIAL INFARCTION [None]
  - CEREBROVASCULAR ACCIDENT [None]
  - PAIN [None]
  - ANHEDONIA [None]
